FAERS Safety Report 7505535-0 (Version None)
Quarter: 2011Q2

REPORT INFORMATION
  Report Type: 
  Country: None (occurrence: None)
  Receive Date: 20110526
  Receipt Date: 20110518
  Transmission Date: 20111010
  Serious: No
  Sender: FDA-Public Use
  Company Number: JP-ASTELLAS-2011JP003238

PATIENT
  Sex: Female
  Weight: 61.5 kg

DRUGS (9)
  1. GASMOTIN [Concomitant]
     Indication: GASTRITIS
     Dosage: 5 MG, UNKNOWN/D
     Route: 048
     Dates: start: 20090812
  2. SG [Concomitant]
     Indication: HEADACHE
     Dosage: 1 G, PRN
     Route: 048
     Dates: start: 20100623
  3. CANDESARTAN CILEXETIL [Concomitant]
     Indication: HYPERTENSION
     Dosage: 4 MG, UID/QD
     Route: 048
     Dates: start: 20090331
  4. LAC B [Concomitant]
     Indication: GASTRITIS
     Dosage: 1 G, TID
     Route: 048
     Dates: start: 20090812
  5. AMLODIPINE [Concomitant]
     Indication: HYPERTENSION
     Dosage: 5 MG, UID/QD
     Route: 048
     Dates: start: 20091118
  6. CRESTOR [Concomitant]
     Dosage: 2.5 MG, UID/QD
     Route: 048
     Dates: start: 20100427, end: 20101124
  7. VESICARE [Suspect]
     Indication: HYPERTONIC BLADDER
     Dosage: 5 MG, UID/QD
     Route: 048
     Dates: start: 20100526, end: 20101028
  8. VESICARE [Suspect]
     Dosage: 5 MG, UNKNOWN/D
     Route: 048
     Dates: start: 20110216
  9. LENDORMIN [Concomitant]
     Dosage: 0.25 MG, PRN
     Route: 048
     Dates: start: 20091118

REACTIONS (1)
  - SUBILEUS [None]
